FAERS Safety Report 16098131 (Version 2)
Quarter: 2019Q3

REPORT INFORMATION
  Report Type: Report from Study
  Country: BE (occurrence: BE)
  Receive Date: 20190320
  Receipt Date: 20190719
  Transmission Date: 20191004
  Serious: Yes (Death, Other)
  Sender: FDA-Public Use
  Company Number: BE-BRISTOL-MYERS SQUIBB COMPANY-BMS-2019-027160

PATIENT
  Age: 69 Year
  Sex: Male
  Weight: 59.7 kg

DRUGS (1)
  1. NIVOLUMAB [Suspect]
     Active Substance: NIVOLUMAB
     Indication: METASTATIC NEOPLASM
     Dosage: 3 MILLIGRAM/KILOGRAM
     Route: 042
     Dates: start: 20190308, end: 20190308

REACTIONS (1)
  - Cerebrovascular accident [Fatal]
